FAERS Safety Report 11038091 (Version 1)
Quarter: 2015Q2

REPORT INFORMATION
  Report Type: Spontaneous
  Country: US (occurrence: US)
  Receive Date: 20150416
  Receipt Date: 20150416
  Transmission Date: 20150821
  Serious: Yes (Hospitalization)
  Sender: FDA-Public Use
  Company Number: US-PERRIGO-15US003706

PATIENT
  Age: 32 Year
  Sex: Female

DRUGS (1)
  1. ACETAMINOPHEN 650MG ER 544 [Suspect]
     Active Substance: ACETAMINOPHEN
     Indication: BACK PAIN
     Dosage: 9 G, QD
     Route: 048

REACTIONS (7)
  - Mental impairment [Recovered/Resolved]
  - Encephalopathy [Recovered/Resolved]
  - Overdose [Unknown]
  - Acute hepatic failure [Recovered/Resolved]
  - Stress cardiomyopathy [Recovering/Resolving]
  - Asterixis [Recovered/Resolved]
  - Coagulopathy [Recovered/Resolved]
